FAERS Safety Report 24178366 (Version 1)
Quarter: 2024Q3

REPORT INFORMATION
  Report Type: Spontaneous
  Country: US (occurrence: US)
  Receive Date: 20240806
  Receipt Date: 20240806
  Transmission Date: 20241017
  Serious: No
  Sender: SANOFI AVENTIS
  Company Number: US-SA-SAC20240801001562

PATIENT
  Age: 61 Year
  Sex: Female

DRUGS (1)
  1. KEVZARA [Suspect]
     Active Substance: SARILUMAB
     Indication: Rheumatoid arthritis
     Dosage: 200 MG
     Route: 058
     Dates: start: 20240525

REACTIONS (4)
  - Swelling face [Recovering/Resolving]
  - Pruritus [Recovering/Resolving]
  - Skin burning sensation [Recovering/Resolving]
  - Dry skin [Not Recovered/Not Resolved]

NARRATIVE: CASE EVENT DATE: 20240721
